FAERS Safety Report 7121798-8 (Version None)
Quarter: 2010Q4

REPORT INFORMATION
  Report Type: 
  Country: None (occurrence: None)
  Receive Date: 20101124
  Receipt Date: 20101115
  Transmission Date: 20110411
  Serious: Yes (Death, Life-Threatening, Other)
  Sender: FDA-Public Use
  Company Number: JP-ROCHE-727740

PATIENT
  Sex: Male
  Weight: 74 kg

DRUGS (9)
  1. AVASTIN [Suspect]
     Indication: LUNG ADENOCARCINOMA
     Route: 041
     Dates: start: 20100610, end: 20100610
  2. AVASTIN [Suspect]
     Route: 041
     Dates: start: 20100707, end: 20100707
  3. AVASTIN [Suspect]
     Dosage: DRUG DISCONTINUED.
     Route: 041
     Dates: start: 20100730, end: 20100730
  4. CARBOPLATIN [Concomitant]
     Dosage: AUC5.
     Route: 041
     Dates: start: 20100610, end: 20100610
  5. CARBOPLATIN [Concomitant]
     Dosage: AUC 5.
     Route: 041
     Dates: start: 20100707, end: 20100707
  6. CARBOPLATIN [Concomitant]
     Dosage: AUC 5.
     Route: 041
     Dates: start: 20100730, end: 20100730
  7. ALIMTA [Concomitant]
     Route: 041
     Dates: start: 20100610, end: 20100610
  8. ALIMTA [Concomitant]
     Route: 041
     Dates: start: 20100707, end: 20100707
  9. ALIMTA [Concomitant]
     Route: 041
     Dates: start: 20100730, end: 20100730

REACTIONS (6)
  - ATELECTASIS [None]
  - DISEASE PROGRESSION [None]
  - HAEMOTHORAX [None]
  - LUNG ABSCESS [None]
  - PNEUMONIA [None]
  - PYOTHORAX [None]
